FAERS Safety Report 6384674-4 (Version None)
Quarter: 2009Q3

REPORT INFORMATION
  Report Type: 
  Country: None (occurrence: None)
  Receive Date: 20090928
  Receipt Date: 20090924
  Transmission Date: 20100115
  Serious: Yes (Hospitalization)
  Sender: FDA-Public Use
  Company Number: 2009SP026794

PATIENT
  Age: 82 Year
  Sex: Male

DRUGS (5)
  1. DESLORATADINE [Suspect]
     Indication: DRUG USE FOR UNKNOWN INDICATION
     Dosage: 1 DF; QD;PO
     Route: 048
  2. OMEPRAZOLE [Suspect]
     Indication: DRUG USE FOR UNKNOWN INDICATION
     Dosage: 20 MG; QD; PO
     Route: 048
  3. ZOCOR [Concomitant]
  4. PREVISCAN [Concomitant]
  5. DOGOXINE [Concomitant]

REACTIONS (2)
  - ASTHENIA [None]
  - CYTOLYTIC HEPATITIS [None]
